FAERS Safety Report 7668250-9 (Version None)
Quarter: 2011Q3

REPORT INFORMATION
  Report Type: 
  Country: None (occurrence: None)
  Receive Date: 20110808
  Receipt Date: 20110506
  Transmission Date: 20111222
  Serious: No
  Sender: FDA-Public Use
  Company Number: US-BAYER-2011-039144

PATIENT
  Sex: Female

DRUGS (1)
  1. CIPROFLOXACIN HCL [Suspect]
     Dosage: 250 MG, TABLET
     Route: 048
     Dates: start: 20110430

REACTIONS (3)
  - INSOMNIA [None]
  - NECK PAIN [None]
  - BACK PAIN [None]
